FAERS Safety Report 5595359-6 (Version None)
Quarter: 2008Q1

REPORT INFORMATION
  Report Type: 
  Country: None (occurrence: None)
  Receive Date: 20080117
  Receipt Date: 20080108
  Transmission Date: 20080703
  Serious: Yes (Other)
  Sender: FDA-Public Use
  Company Number: GB-PFIZER INC-2008002709

PATIENT
  Age: 40 Year
  Sex: Male

DRUGS (7)
  1. CHANTIX [Suspect]
     Indication: SMOKING CESSATION THERAPY
     Dates: start: 20071019, end: 20071101
  2. CETIRIZINE HCL [Concomitant]
  3. CITALOPRAM [Concomitant]
  4. LOPERAMIDE HCL [Concomitant]
  5. NICORETTE [Concomitant]
  6. TEMAZEPAM [Concomitant]
  7. ANTIVIRALS FOR SYSTEMIC USE [Concomitant]

REACTIONS (1)
  - MENTAL DISORDER [None]
